FAERS Safety Report 5999740-2 (Version None)
Quarter: 2008Q4

REPORT INFORMATION
  Report Type: 
  Country: None (occurrence: None)
  Receive Date: 20081211
  Receipt Date: 20081211
  Transmission Date: 20090506
  Serious: Yes (Other)
  Sender: FDA-Public Use
  Company Number: None

PATIENT
  Sex: Male
  Weight: 98.8842 kg

DRUGS (1)
  1. ISOSORBIDE MONONITRATE [Suspect]
     Indication: HYPERTENSION
     Dosage: 30MG 1 X DY
     Dates: start: 20081111, end: 20081101

REACTIONS (9)
  - ABDOMINAL DISCOMFORT [None]
  - BALANCE DISORDER [None]
  - BODY TEMPERATURE DECREASED [None]
  - DIZZINESS [None]
  - FEELING COLD [None]
  - HEADACHE [None]
  - INFLUENZA [None]
  - PRODUCT QUALITY ISSUE [None]
  - VISION BLURRED [None]
